FAERS Safety Report 25337341 (Version 2)
Quarter: 2025Q2

REPORT INFORMATION
  Report Type: Report from Study
  Country: RU (occurrence: RU)
  Receive Date: 20250520
  Receipt Date: 20250522
  Transmission Date: 20250717
  Serious: Yes (Other)
  Sender: JOHNSON AND JOHNSON
  Company Number: RU-JNJFOC-20250508611

PATIENT

DRUGS (1)
  1. REMICADE [Suspect]
     Active Substance: INFLIXIMAB
     Indication: Colitis ulcerative
     Route: 041

REACTIONS (6)
  - Choking [Unknown]
  - Anaphylactic shock [Unknown]
  - Angioedema [Unknown]
  - Urticaria [Unknown]
  - Rhinitis [Unknown]
  - Loss of therapeutic response [Unknown]
